FAERS Safety Report 21734796 (Version 1)
Quarter: 2022Q4

REPORT INFORMATION
  Report Type: Spontaneous
  Country: US (occurrence: US)
  Receive Date: 20221215
  Receipt Date: 20221215
  Transmission Date: 20230112
  Serious: No
  Sender: FDA-Public Use
  Company Number: None

PATIENT
  Age: 71 Year
  Sex: Male
  Weight: 155 kg

DRUGS (4)
  1. ENOXAPARIN SODIUM [Suspect]
     Active Substance: ENOXAPARIN SODIUM
     Indication: Pulmonary thrombosis
     Route: 058
     Dates: start: 202210
  2. ENOXAPARIN SODIUM [Suspect]
     Active Substance: ENOXAPARIN SODIUM
     Indication: Thrombosis
  3. folfox chemo [Concomitant]
     Indication: Neoplasm malignant
     Route: 065
  4. Opdivo chemo [Concomitant]
     Indication: Neoplasm malignant
     Route: 065

REACTIONS (4)
  - Injection site pain [Unknown]
  - Product dose omission issue [Unknown]
  - Device safety feature issue [Unknown]
  - Product quality issue [Unknown]
